FAERS Safety Report 7960003-7 (Version None)
Quarter: 2011Q4

REPORT INFORMATION
  Report Type: 
  Country: None (occurrence: None)
  Receive Date: 20111206
  Receipt Date: 20111121
  Transmission Date: 20120403
  Serious: Yes (Other)
  Sender: FDA-Public Use
  Company Number: PHFR2011GB05965

PATIENT
  Sex: Male

DRUGS (3)
  1. CLOZARIL [Suspect]
     Indication: PSYCHOTIC DISORDER
     Dosage: 12.5 MG
     Route: 048
     Dates: start: 20111017, end: 20111121
  2. CLOZARIL [Suspect]
     Dosage: 25 MG, UNK
     Route: 048
  3. OLANZAPINE [Concomitant]
     Dosage: 2.5 MG, UNK

REACTIONS (10)
  - SEDATION [None]
  - HYPOTENSION [None]
  - MUSCULOSKELETAL STIFFNESS [None]
  - FEELING ABNORMAL [None]
  - GAIT DISTURBANCE [None]
  - SALIVARY HYPERSECRETION [None]
  - EYE DISORDER [None]
  - FLUSHING [None]
  - HEADACHE [None]
  - SOMNOLENCE [None]
